FAERS Safety Report 8879093 (Version 1)
Quarter: 2012Q4

REPORT INFORMATION
  Report Type: Spontaneous
  Country: US (occurrence: None)
  Receive Date: 20121031
  Receipt Date: 20121031
  Transmission Date: 20130627
  Serious: Yes (Hospitalization)
  Sender: FDA-Public Use
  Company Number: None

PATIENT
  Age: 64 Year
  Sex: Female

DRUGS (13)
  1. LETAIRIS [Suspect]
     Route: 048
     Dates: start: 20120928, end: 20121011
  2. REVATIO [Concomitant]
  3. COUMADIN [Concomitant]
  4. LASIX [Concomitant]
  5. KLOR-CON [Concomitant]
  6. COZAAR [Concomitant]
  7. ZOCAR [Concomitant]
  8. GLUCOTROL [Concomitant]
  9. PROAIR HFA [Concomitant]
  10. DESYREL [Concomitant]
  11. NOVASC [Concomitant]
  12. HYGROTON [Concomitant]
  13. LEVOTHROID [Concomitant]

REACTIONS (2)
  - Weight increased [None]
  - Dyspnoea [None]
